FAERS Safety Report 5073128-3 (Version None)
Quarter: 2006Q3

REPORT INFORMATION
  Report Type: 
  Country: None (occurrence: None)
  Receive Date: 20060711
  Receipt Date: 20060413
  Transmission Date: 20061208
  Serious: No
  Sender: FDA-Public Use
  Company Number: 2006S1000096

PATIENT

DRUGS (1)
  1. CUBICIN [Suspect]

REACTIONS (1)
  - PULMONARY OEDEMA [None]
